FAERS Safety Report 9077383 (Version 1)
Quarter: 2013Q1

REPORT INFORMATION
  Report Type: Spontaneous
  Country: GB (occurrence: GB)
  Receive Date: 20130130
  Receipt Date: 20130130
  Transmission Date: 20140127
  Serious: Yes (Other)
  Sender: FDA-Public Use
  Company Number: GB-ACCORD-016148

PATIENT
  Age: 77 Year
  Sex: Male

DRUGS (1)
  1. MITOMYCIN [Suspect]
     Indication: TRANSITIONAL CELL CARCINOMA
     Dosage: 40MG IN 40 CC OF WATER FOR INJECTION
     Route: 043

REACTIONS (3)
  - Bladder perforation [Recovered/Resolved]
  - Neurogenic shock [Unknown]
  - Off label use [Unknown]
